FAERS Safety Report 6230697-5 (Version None)
Quarter: 2009Q2

REPORT INFORMATION
  Report Type: 
  Country: None (occurrence: None)
  Receive Date: 20090616
  Receipt Date: 20090608
  Transmission Date: 20091009
  Serious: Yes (Hospitalization, Other)
  Sender: FDA-Public Use
  Company Number: US-BRISTOL-MYERS SQUIBB COMPANY-14653901

PATIENT
  Age: 62 Year
  Sex: Female

DRUGS (2)
  1. METFORMIN HCL [Suspect]
  2. TROGLITAZONE [Suspect]
     Dosage: RESTARTED 3 DAYS LATER AT 400 MILLIGRAM DAILY.

REACTIONS (3)
  - BLOOD LACTIC ACID INCREASED [None]
  - LIVER INJURY [None]
  - PULMONARY OEDEMA [None]
